FAERS Safety Report 7316155-5 (Version None)
Quarter: 2011Q1

REPORT INFORMATION
  Report Type: 
  Country: None (occurrence: None)
  Receive Date: 20110225
  Receipt Date: 20110218
  Transmission Date: 20110831
  Serious: Yes (Other)
  Sender: FDA-Public Use
  Company Number: KR-PFIZER INC-2011037205

PATIENT
  Sex: Male

DRUGS (1)
  1. SUTENE [Suspect]
     Indication: RENAL CANCER METASTATIC
     Dosage: 4 WEEK ON/2 WEEK OFF
     Route: 048

REACTIONS (9)
  - DERMATITIS [None]
  - EPISTAXIS [None]
  - DEAFNESS [None]
  - EYELID OEDEMA [None]
  - STOMATITIS [None]
  - SKIN DISCOLOURATION [None]
  - DYSPHONIA [None]
  - NASAL INFLAMMATION [None]
  - ANAL INFLAMMATION [None]
